FAERS Safety Report 6830061-1 (Version None)
Quarter: 2010Q3

REPORT INFORMATION
  Report Type: 
  Country: None (occurrence: None)
  Receive Date: 20100711
  Receipt Date: 20100510
  Transmission Date: 20110219
  Serious: No
  Sender: FDA-Public Use
  Company Number: US-ALLERGAN-1006102US

PATIENT
  Sex: Female

DRUGS (4)
  1. LATISSE [Suspect]
     Indication: HYPOTRICHOSIS
     Dosage: 1 GTT, QHS
     Route: 061
  2. LATISSE [Suspect]
     Dosage: 1 GTT, UNK
     Route: 061
     Dates: start: 20100509, end: 20100509
  3. HERBAL DIURETIC [Concomitant]
     Dosage: UNK
  4. CONTACT LENS SOLUTIONS [Concomitant]
     Indication: CORRECTIVE LENS USER

REACTIONS (3)
  - DRY EYE [None]
  - EYELID OEDEMA [None]
  - WRONG TECHNIQUE IN DRUG USAGE PROCESS [None]
